FAERS Safety Report 17655610 (Version 1)
Quarter: 2020Q2

REPORT INFORMATION
  Report Type: Report from Study
  Country: US (occurrence: US)
  Receive Date: 20200410
  Receipt Date: 20200410
  Transmission Date: 20200713
  Serious: No
  Sender: FDA-Public Use
  Company Number: US-SUNOVION-2020SUN001085

PATIENT
  Age: 74 Year
  Sex: Female

DRUGS (5)
  1. LONHALA MAGNAIR [Suspect]
     Active Substance: GLYCOPYRROLATE
     Dosage: 25 ?G/ML (1 PUFF), BID
     Route: 055
  2. ALLOPURINOL. [Concomitant]
     Active Substance: ALLOPURINOL
     Dosage: 100 MG
  3. DICLOFENAC [Concomitant]
     Active Substance: DICLOFENAC
     Dosage: 1 APPLICATION, FOUR TIMES A DAY
     Route: 061
  4. LIDOPRO [Concomitant]
     Active Substance: CAPSAICIN\LIDOCAINE\MENTHOL\METHYL SALICYLATE
     Dosage: 1 APPLICATION, THREE TIMES A DAY AS NEEDED
     Route: 061
  5. ADVAIR HFA [Concomitant]
     Active Substance: FLUTICASONE PROPIONATE\SALMETEROL XINAFOATE
     Dosage: 1 PUFF, BID
     Route: 055

REACTIONS (1)
  - Dyspnoea [Recovered/Resolved]

NARRATIVE: CASE EVENT DATE: 20200310
